FAERS Safety Report 16771995 (Version 1)
Quarter: 2019Q3

REPORT INFORMATION
  Report Type: Spontaneous
  Country: GB (occurrence: GB)
  Receive Date: 20190904
  Receipt Date: 20190904
  Transmission Date: 20191005
  Serious: Yes (Other)
  Sender: FDA-Public Use
  Company Number: GB-MYLANLABS-2019M1082479

PATIENT
  Sex: Male

DRUGS (1)
  1. ACAMPROSATE [Suspect]
     Active Substance: ACAMPROSATE
     Indication: PRODUCT USED FOR UNKNOWN INDICATION
     Dosage: UNK
     Dates: end: 201903

REACTIONS (3)
  - Alcohol withdrawal syndrome [Unknown]
  - Decreased appetite [Unknown]
  - Haematemesis [Unknown]

NARRATIVE: CASE EVENT DATE: 201903
